FAERS Safety Report 8375599-3 (Version None)
Quarter: 2012Q2

REPORT INFORMATION
  Report Type: 
  Country: None (occurrence: None)
  Receive Date: 20120522
  Receipt Date: 20120514
  Transmission Date: 20120825
  Serious: Yes (Other)
  Sender: FDA-Public Use
  Company Number: US-BAYER-2012-022915

PATIENT
  Age: 45 Year
  Sex: Female
  Weight: 80.726 kg

DRUGS (4)
  1. LIPITOR [Concomitant]
     Indication: HYPERTENSION
  2. MIRENA [Suspect]
     Indication: MENORRHAGIA
     Dosage: 20 MCG/24HR, CONT
     Route: 015
     Dates: start: 20001201
  3. SERTRALINE HYDROCHLORIDE [Concomitant]
     Indication: HYPERTENSION
  4. LISINOPRIL [Concomitant]
     Indication: HYPERTENSION

REACTIONS (4)
  - DEVICE DISLOCATION [None]
  - GENITAL HAEMORRHAGE [None]
  - MENSTRUAL DISORDER [None]
  - MENORRHAGIA [None]
